FAERS Safety Report 25823822 (Version 2)
Quarter: 2025Q3

REPORT INFORMATION
  Report Type: Spontaneous
  Country: JP (occurrence: JP)
  Receive Date: 20250919
  Receipt Date: 20250926
  Transmission Date: 20251021
  Serious: Yes (Death, Other)
  Sender: BOEHRINGER INGELHEIM
  Company Number: JP-NBI-2025-BI-095893

PATIENT
  Age: 7 Decade
  Sex: Male

DRUGS (6)
  1. IDARUCIZUMAB [Suspect]
     Active Substance: IDARUCIZUMAB
     Indication: Procoagulant therapy
  2. PILSICAINIDE HYDROCHLORIDE HEMIHYDRATE [Concomitant]
     Active Substance: PILSICAINIDE HYDROCHLORIDE HEMIHYDRATE
     Indication: Product used for unknown indication
  3. ALPRAZOLAM [Concomitant]
     Active Substance: ALPRAZOLAM
     Indication: Product used for unknown indication
  4. ATENOLOL [Concomitant]
     Active Substance: ATENOLOL
     Indication: Product used for unknown indication
  5. ATORVASTATIN [Concomitant]
     Active Substance: ATORVASTATIN
     Indication: Product used for unknown indication
  6. AMLODIPINE BESYLATE [Concomitant]
     Active Substance: AMLODIPINE BESYLATE
     Indication: Product used for unknown indication

REACTIONS (12)
  - Septic shock [Fatal]
  - Venous injury [Unknown]
  - Pancreatic injury [Unknown]
  - Arterial injury [Unknown]
  - Gastrointestinal necrosis [Unknown]
  - Anastomotic complication [Unknown]
  - Gastrointestinal oedema [Unknown]
  - Intra-abdominal haemorrhage [Unknown]
  - Shock haemorrhagic [Unknown]
  - Portal vein thrombosis [Unknown]
  - Liver disorder [Unknown]
  - Coagulopathy [Unknown]
